FAERS Safety Report 5298742-1 (Version None)
Quarter: 2007Q2

REPORT INFORMATION
  Report Type: 
  Country: None (occurrence: None)
  Receive Date: 20070417
  Receipt Date: 20070410
  Transmission Date: 20071010
  Serious: Yes (Hospitalization)
  Sender: FDA-Public Use
  Company Number: ES-BAYER-200711723GDS

PATIENT
  Age: 71 Year
  Sex: Male
  Weight: 67 kg

DRUGS (11)
  1. SORAFENIB [Suspect]
     Indication: RENAL CELL CARCINOMA STAGE UNSPECIFIED
     Dosage: TOTAL DAILY DOSE: 800 MG
     Route: 048
     Dates: start: 20070214
  2. CAPECITABINE [Suspect]
     Indication: RENAL CELL CARCINOMA STAGE UNSPECIFIED
     Dosage: TOTAL DAILY DOSE: 1300 MG/M2
     Route: 048
     Dates: start: 20070213, end: 20070313
  3. CAPECITABINE [Suspect]
     Dosage: TOTAL DAILY DOSE: 1300 MG/M2
     Route: 048
     Dates: start: 20070404
  4. GEMCITABINE HCL [Suspect]
     Indication: RENAL CELL CARCINOMA STAGE UNSPECIFIED
     Route: 042
     Dates: start: 20070213, end: 20070301
  5. GEMCITABINE HCL [Suspect]
     Route: 042
     Dates: start: 20070404
  6. FUROSEMIDE [Concomitant]
     Indication: HYPERTENSION
     Route: 048
  7. OMEPRAZOLE [Concomitant]
     Indication: GASTRITIS PROPHYLAXIS
     Route: 048
  8. MANIDIPINE [Concomitant]
     Indication: HYPERTENSION
     Route: 048
  9. AMIODARONE HCL [Concomitant]
     Indication: ARRHYTHMIA
     Route: 048
  10. DOXAZOSIN MESYLATE [Concomitant]
     Indication: HYPERTENSION
     Route: 048
  11. DARBEPOETIN ALFA [Concomitant]
     Indication: ANAEMIA
     Route: 065

REACTIONS (2)
  - DEEP VEIN THROMBOSIS [None]
  - TUMOUR EMBOLISM [None]
